FAERS Safety Report 4822061-8 (Version None)
Quarter: 2005Q4

REPORT INFORMATION
  Report Type: 
  Country: None (occurrence: None)
  Receive Date: 20051102
  Receipt Date: 20051019
  Transmission Date: 20060501
  Serious: Yes (Other)
  Sender: FDA-Public Use
  Company Number: GBS051018814

PATIENT
  Age: 13 Year
  Sex: Male

DRUGS (1)
  1. STRATTERA [Suspect]
     Dosage: 40 MG

REACTIONS (4)
  - DEPRESSION [None]
  - GROWTH RETARDATION [None]
  - INSOMNIA [None]
  - SUICIDAL IDEATION [None]
